FAERS Safety Report 19649185 (Version 3)
Quarter: 2021Q4

REPORT INFORMATION
  Report Type: Spontaneous
  Country: US (occurrence: US)
  Receive Date: 20210802
  Receipt Date: 20211110
  Transmission Date: 20220303
  Serious: No
  Sender: FDA-Public Use
  Company Number: US-PFIZER INC-2019426181

PATIENT
  Age: 74 Year
  Sex: Female
  Weight: 63.96 kg

DRUGS (7)
  1. XALKORI [Suspect]
     Active Substance: CRIZOTINIB
     Indication: Lung neoplasm malignant
     Dosage: 250 MG, 2X/DAY
     Dates: end: 201910
  2. XALKORI [Suspect]
     Active Substance: CRIZOTINIB
     Dosage: 250 MG, 1X/DAY (250MG ONCE PER DAY BY MOUTH)
     Route: 048
     Dates: start: 201910
  3. XALKORI [Suspect]
     Active Substance: CRIZOTINIB
     Dosage: 250 MG, DAILY (1 TAB DAILY
  4. PLAVIX [Concomitant]
     Active Substance: CLOPIDOGREL BISULFATE
     Indication: Cerebrovascular accident
     Dosage: 1 DF, 1X/DAY [UNSURE DOSE, 1 PINK TABLET BY MOUTH IN THE EVENING]
     Route: 048
     Dates: start: 201904
  5. SINGULAIR [Concomitant]
     Active Substance: MONTELUKAST SODIUM
     Indication: Hypersensitivity
     Dosage: 1 DF, 1X/DAY [UNSURE DOSE, 1 YELLOW TABLET BY MOUTH IN THE EVENING]
     Route: 048
  6. ASPIRIN [Concomitant]
     Active Substance: ASPIRIN
     Indication: Anticoagulant therapy
     Dosage: 81 MG, DAILY(1 TABLET BY MOUTH DAILY)
     Route: 048
     Dates: start: 2019
  7. LIPITOR [Concomitant]
     Active Substance: ATORVASTATIN CALCIUM
     Indication: Blood cholesterol abnormal
     Dosage: 1 DF, 1X/DAY [UNSURE OF DOSE, 1 TABLET BY MOUTH IN THE EVENING ]
     Route: 048
     Dates: start: 201904

REACTIONS (3)
  - Intercepted product dispensing error [Unknown]
  - Product prescribing error [Unknown]
  - Anxiety [Unknown]

NARRATIVE: CASE EVENT DATE: 20190101
